FAERS Safety Report 8117096-6 (Version None)
Quarter: 2012Q1

REPORT INFORMATION
  Report Type: 
  Country: None (occurrence: None)
  Receive Date: 20120206
  Receipt Date: 20120202
  Transmission Date: 20120608
  Serious: Yes (Death)
  Sender: FDA-Public Use
  Company Number: AR-ABBOTT-12P-007-0900581-00

PATIENT
  Sex: Female

DRUGS (1)
  1. HUMIRA [Suspect]
     Indication: RHEUMATOID ARTHRITIS
     Route: 058
     Dates: start: 20110819

REACTIONS (4)
  - POST PROCEDURAL COMPLICATION [None]
  - HIP FRACTURE [None]
  - FALL [None]
  - RESPIRATORY DISORDER [None]
